FAERS Safety Report 9049328 (Version 3)
Quarter: 2013Q1

REPORT INFORMATION
  Report Type: Spontaneous
  Country: JP (occurrence: JP)
  Receive Date: 20130205
  Receipt Date: 20130314
  Transmission Date: 20140127
  Serious: Yes (Hospitalization, Other)
  Sender: FDA-Public Use
  Company Number: JP-ROCHE-1187649

PATIENT
  Age: 79 None
  Sex: Male

DRUGS (8)
  1. ROCEPHIN [Suspect]
     Indication: PNEUMONIA
     Route: 042
     Dates: start: 20121217, end: 20121221
  2. CRAVIT [Suspect]
     Indication: PNEUMONIA
     Route: 048
     Dates: start: 20121217, end: 20121221
  3. MINOMYCIN [Suspect]
     Indication: PNEUMONIA
     Route: 042
     Dates: start: 20121217, end: 20121221
  4. ZESULAN [Suspect]
     Indication: PNEUMONIA
     Route: 048
     Dates: start: 20121207, end: 20121221
  5. UNASYN [Concomitant]
     Indication: PNEUMONIA
     Route: 042
     Dates: start: 20121221
  6. CLARITHROMYCIN [Concomitant]
     Indication: PNEUMONIA
     Route: 048
     Dates: start: 20121221
  7. MUCOSOLVAN [Concomitant]
     Indication: PNEUMONIA
     Route: 048
     Dates: start: 20121207
  8. GRACEVIT [Concomitant]

REACTIONS (3)
  - Interstitial lung disease [Recovered/Resolved with Sequelae]
  - Pneumonia [Unknown]
  - Cardiothoracic ratio increased [Unknown]
